FAERS Safety Report 10061634 (Version 4)
Quarter: 2014Q2

REPORT INFORMATION
  Report Type: Spontaneous
  Country: US (occurrence: None)
  Receive Date: 20140403
  Receipt Date: 20140618
  Transmission Date: 20141212
  Serious: Yes (Hospitalization)
  Sender: FDA-Public Use
  Company Number: 2014SGN00249

PATIENT
  Age: 79 Year
  Sex: Female
  Weight: 65.8 kg

DRUGS (14)
  1. BRENTUXIMAB VEDOTIN [Suspect]
     Indication: HODGKIN^S DISEASE
     Dosage: 1.8 MG/KG, Q21D, INTRAVENOUS
     Route: 042
     Dates: start: 20140107, end: 20140311
  2. BENDAMUSTINE HYDROCHLORIDE [Suspect]
     Indication: HODGKIN^S DISEASE
     Dosage: 90 MG/M2, Q21D, INTRAVENOUS
     Route: 042
     Dates: start: 20140107, end: 20140312
  3. ACYCLOVIR (ACYCLOVIR) [Concomitant]
  4. LEVOTHYROXINE (LEVOTHYROXINE) [Concomitant]
  5. LORAZEPAM (LORAZEPAM) [Concomitant]
  6. METOPROLOL SUCCINATE (METOPROLOL SUCCINATE) [Concomitant]
  7. OMEPRAZOLE (OMEPRAZOLE) [Concomitant]
  8. ONDANSETRON (ONDANSETRON) [Concomitant]
  9. PEGFILGRASTIM (PEGFILGRASTIM) [Concomitant]
  10. TRIMETHOPRIM SULFAMETHOXAZOLE (SULFAMETHOXAZOLE, TRIMETHOPRIM) [Concomitant]
  11. VENLAFAXINE (VENLAFAXINE) [Concomitant]
  12. ACETAMINOPHEN (ACETAMINOPHEN) [Concomitant]
  13. ASPIRIN (ACETYLSALICYLIC ACID) [Concomitant]
  14. DOCUSATE (DOCUSATE) [Concomitant]

REACTIONS (14)
  - Failure to thrive [None]
  - Diarrhoea [None]
  - Decreased appetite [None]
  - Eructation [None]
  - Blood sodium decreased [None]
  - Blood potassium decreased [None]
  - Blood phosphorus decreased [None]
  - Malnutrition [None]
  - Metabolic disorder [None]
  - Colitis [None]
  - Sensation of foreign body [None]
  - Blood phosphorus increased [None]
  - Decreased appetite [None]
  - Pyrexia [None]
